FAERS Safety Report 24616630 (Version 1)
Quarter: 2024Q4

REPORT INFORMATION
  Report Type: Spontaneous
  Country: KR (occurrence: KR)
  Receive Date: 20241114
  Receipt Date: 20241114
  Transmission Date: 20250115
  Serious: Yes (Other)
  Sender: REGENERON
  Company Number: KR-BAYER-2024A159103

PATIENT
  Age: 83 Year
  Sex: Male

DRUGS (2)
  1. EYLEA HD [Suspect]
     Active Substance: AFLIBERCEPT
     Indication: Product used for unknown indication
     Dosage: SOLUTION FOR INJECTION, 114.3 MG/ML
  2. EYLEA HD [Suspect]
     Active Substance: AFLIBERCEPT
     Dosage: UNK , SOLUTION FOR INJECTION, 114.3 MG/ML
     Dates: start: 20241025, end: 20241025

REACTIONS (5)
  - Blindness [Not Recovered/Not Resolved]
  - Vitreous haemorrhage [Unknown]
  - Vitreal cells [Unknown]
  - Corneal oedema [Not Recovered/Not Resolved]
  - Anterior chamber cell [Unknown]

NARRATIVE: CASE EVENT DATE: 20241026
